FAERS Safety Report 9233751 (Version 1)
Quarter: 2013Q1

REPORT INFORMATION
  Report Type: Spontaneous
  Country: US (occurrence: None)
  Receive Date: 20121031
  Receipt Date: 20121031
  Transmission Date: 20140127
  Serious: No
  Sender: FDA-Public Use
  Company Number: PHEH2012US015087

PATIENT
  Age: 46 Year
  Sex: Female
  Weight: 71.2 kg

DRUGS (4)
  1. GILENYA [Suspect]
     Route: 048
  2. SYNTHROID (LEVOTHYROXINE SODIUM) TABLET [Concomitant]
  3. VITAMIN B COMPLEX (CALCIUM PANTOTHENATE, NICOTINAMIDE, PYRIDOXINE HYDROCHLORIDE, RIBOFLAVIN, THIAMINE HYDROCHLORIDE) CAPSULE [Concomitant]
  4. VITAMIN D (ERGOCALCIFEROL) CAPSULE [Concomitant]

REACTIONS (1)
  - Fatigue [None]
